FAERS Safety Report 11425217 (Version 1)
Quarter: 2015Q3

REPORT INFORMATION
  Report Type: Spontaneous
  Country: CN (occurrence: CN)
  Receive Date: 20150827
  Receipt Date: 20150827
  Transmission Date: 20151125
  Serious: Yes (Other)
  Sender: FDA-Public Use
  Company Number: CN-MYLANLABS-2015M1028811

PATIENT

DRUGS (7)
  1. CISPLATIN. [Suspect]
     Active Substance: CISPLATIN
     Indication: ANGIOSARCOMA METASTATIC
     Dosage: CYCLICAL; 75 MG/M2 ON DAY 1, REPEATED EVERY THREE WEEKS
     Route: 065
  2. VINCRISTINE [Suspect]
     Active Substance: VINCRISTINE
     Indication: ANGIOSARCOMA METASTATIC
     Dosage: CYCLICAL;1.4 MG/M2 ON DAY 1
     Route: 065
  3. CYCLOPHOSPHAMIDE. [Suspect]
     Active Substance: CYCLOPHOSPHAMIDE
     Indication: ANGIOSARCOMA METASTATIC
     Dosage: CYCLICAL; 750 MG/M2 ON DAY 1
     Route: 065
  4. DACARBAZINE. [Suspect]
     Active Substance: DACARBAZINE
     Indication: ANGIOSARCOMA METASTATIC
     Dosage: CYCLICAL; 250 MG/M2 FROM DAY 1-5
     Route: 065
  5. THALIDOMIDE [Concomitant]
     Active Substance: THALIDOMIDE
     Route: 048
  6. EPIRUBICIN [Suspect]
     Active Substance: EPIRUBICIN
     Indication: ANGIOSARCOMA METASTATIC
     Dosage: CYCLICAL;60 MG/M2 ON DAY 1
     Route: 065
  7. DOCETAXEL. [Suspect]
     Active Substance: DOCETAXEL
     Indication: ANGIOSARCOMA METASTATIC
     Dosage: CYCLICAL; 75 MG/M2 ON DAY 1, REPEATED EVERY THREE WEEKS
     Route: 065

REACTIONS (4)
  - Leukopenia [Unknown]
  - Nausea [Unknown]
  - Bone marrow failure [Unknown]
  - Liver injury [Unknown]
